FAERS Safety Report 19436281 (Version 3)
Quarter: 2021Q2

REPORT INFORMATION
  Report Type: Spontaneous
  Country: GB (occurrence: GB)
  Receive Date: 20210618
  Receipt Date: 20210630
  Transmission Date: 20210717
  Serious: Yes (Other)
  Sender: FDA-Public Use
  Company Number: GB-SAMSUNG BIOEPIS-SB-2021-14809

PATIENT
  Age: 79 Year
  Sex: Female

DRUGS (1)
  1. IMRALDI [Suspect]
     Active Substance: ADALIMUMAB
     Indication: CROHN^S DISEASE
     Dosage: UNKNOWN, STARTED 18 MONTHS AGO
     Route: 058

REACTIONS (7)
  - Injection site pain [Unknown]
  - Knee arthroplasty [Not Recovered/Not Resolved]
  - Injection site bruising [Unknown]
  - Device issue [Unknown]
  - Injection site haemorrhage [Not Recovered/Not Resolved]
  - Fear of injection [Unknown]
  - Product substitution issue [Unknown]
